FAERS Safety Report 6086874-X (Version None)
Quarter: 2009Q1

REPORT INFORMATION
  Report Type: 
  Country: None (occurrence: None)
  Receive Date: 20090219
  Receipt Date: 20090205
  Transmission Date: 20090719
  Serious: Yes (Other)
  Sender: FDA-Public Use
  Company Number: WAES0902USA00707

PATIENT
  Sex: Female
  Weight: 116.5744 kg

DRUGS (1)
  1. ALDOMET [Suspect]
     Indication: HYPERTENSION
     Dosage: 250MG DAILY, PO
     Route: 048
     Dates: start: 20050515, end: 20050530

REACTIONS (3)
  - HEPATOMEGALY [None]
  - JAUNDICE [None]
  - SPLENOMEGALY [None]
